FAERS Safety Report 11564420 (Version 1)
Quarter: 2015Q3

REPORT INFORMATION
  Report Type: Spontaneous
  Country: US (occurrence: US)
  Receive Date: 20150916
  Receipt Date: 20150916
  Transmission Date: 20151125
  Serious: No
  Sender: FDA-Public Use
  Company Number: US-ELI_LILLY_AND_COMPANY-US200903003794

PATIENT
  Age: 78 Year
  Sex: Female

DRUGS (8)
  1. PRILOSEC [Concomitant]
     Active Substance: OMEPRAZOLE MAGNESIUM
  2. CALCIUM [Concomitant]
     Active Substance: CALCIUM
  3. VITAMIN D [Concomitant]
     Active Substance: CHOLECALCIFEROL
  4. HYDROCHLOROTHIAZIDE. [Concomitant]
     Active Substance: HYDROCHLOROTHIAZIDE
  5. HYDROCODONE [Concomitant]
     Active Substance: HYDROCODONE
  6. LESCOL XL [Concomitant]
     Active Substance: FLUVASTATIN SODIUM
  7. FORTEO [Suspect]
     Active Substance: TERIPARATIDE
     Indication: OSTEOPOROSIS
     Dosage: UNK, UNK
     Dates: start: 20090227
  8. BENICAR [Concomitant]
     Active Substance: OLMESARTAN MEDOXOMIL

REACTIONS (6)
  - Insomnia [Not Recovered/Not Resolved]
  - Micturition urgency [Not Recovered/Not Resolved]
  - Fatigue [Not Recovered/Not Resolved]
  - Dysuria [Recovering/Resolving]
  - Chromaturia [Not Recovered/Not Resolved]
  - Urinary tract infection [Not Recovered/Not Resolved]

NARRATIVE: CASE EVENT DATE: 200903
